FAERS Safety Report 17093069 (Version 1)
Quarter: 2019Q4

REPORT INFORMATION
  Report Type: Spontaneous
  Country: US (occurrence: US)
  Receive Date: 20191101
  Receipt Date: 20191101
  Transmission Date: 20200122
  Serious: No
  Sender: FDA-Public Use
  Company Number: None

PATIENT
  Age: 17 Year
  Sex: Male

DRUGS (9)
  1. ETOPOSIDE 50MG CAPSULES [Suspect]
     Active Substance: ETOPOSIDE
     Indication: BRAIN NEOPLASM MALIGNANT
     Dosage: ?          OTHER FREQUENCY:QD21 DAYS;?
     Route: 048
     Dates: start: 20170803
  2. BACTRIM [Concomitant]
     Active Substance: SULFAMETHOXAZOLE\TRIMETHOPRIM
  3. MILK OF MAGN [Concomitant]
  4. SMZ/TMP [Concomitant]
     Active Substance: SULFAMETHOXAZOLE\TRIMETHOPRIM
  5. VITAMIN C [Concomitant]
     Active Substance: ASCORBIC ACID
  6. CYCLOPHOSPHAMIDE 50MG CAP [Suspect]
     Active Substance: CYCLOPHOSPHAMIDE
     Indication: BRAIN NEOPLASM MALIGNANT
     Dosage: ?          OTHER FREQUENCY:QD21 DAYS;?
     Route: 048
     Dates: start: 20190130
  7. FENOFIBRATE. [Concomitant]
     Active Substance: FENOFIBRATE
  8. THALOMID [Concomitant]
     Active Substance: THALIDOMIDE
  9. CELECOXIB. [Concomitant]
     Active Substance: CELECOXIB

REACTIONS (1)
  - Fatigue [None]

NARRATIVE: CASE EVENT DATE: 2019
